FAERS Safety Report 7984280-1 (Version None)
Quarter: 2011Q4

REPORT INFORMATION
  Report Type: 
  Country: None (occurrence: None)
  Receive Date: 20111214
  Receipt Date: 20111201
  Transmission Date: 20120403
  Serious: Yes (Hospitalization)
  Sender: FDA-Public Use
  Company Number: 2011-4413

PATIENT
  Age: 43 Year
  Sex: Female
  Weight: 48 kg

DRUGS (3)
  1. RESTYLAEN (HYALURONIC ACID) [Concomitant]
  2. DYSPORT [Suspect]
     Indication: SKIN COSMETIC PROCEDURE
     Dosage: 60 UNITS (60 UNITS,SINGLE CYCLE)
     Dates: start: 20111028, end: 20111028
  3. DYSPORT [Suspect]
     Indication: OFF LABEL USE
     Dosage: 60 UNITS (60 UNITS,SINGLE CYCLE)
     Dates: start: 20111028, end: 20111028

REACTIONS (5)
  - PRODUCT QUALITY ISSUE [None]
  - DYSPHAGIA [None]
  - WRONG TECHNIQUE IN DRUG USAGE PROCESS [None]
  - INCORRECT DOSE ADMINISTERED [None]
  - INAPPROPRIATE SCHEDULE OF DRUG ADMINISTRATION [None]
